FAERS Safety Report 4995753-8 (Version None)
Quarter: 2006Q2

REPORT INFORMATION
  Report Type: 
  Country: None (occurrence: None)
  Receive Date: 20060504
  Receipt Date: 20060418
  Transmission Date: 20061013
  Serious: No
  Sender: FDA-Public Use
  Company Number: DSA_27718_2006

PATIENT
  Age: 80 Year
  Sex: Female
  Weight: 67.1324 kg

DRUGS (7)
  1. CARDIZEM CD [Suspect]
     Indication: ATRIAL FIBRILLATION
     Dosage: 180 MG Q DAY PO
     Route: 048
     Dates: end: 20050101
  2. CARDIZEM CD [Suspect]
     Indication: HYPERTENSION
     Dosage: 180 MG Q DAY PO
     Route: 048
     Dates: end: 20050101
  3. WARFARIN [Concomitant]
  4. ZANTAC [Concomitant]
  5. VITAMIN E [Concomitant]
  6. VITAMIN D [Concomitant]
  7. BENICAR [Concomitant]

REACTIONS (4)
  - AMNESIA [None]
  - DIZZINESS [None]
  - FOOD INTOLERANCE [None]
  - HEADACHE [None]
